FAERS Safety Report 4319031-5 (Version None)
Quarter: 2004Q1

REPORT INFORMATION
  Report Type: 
  Country: None (occurrence: None)
  Receive Date: 20040316
  Receipt Date: 20040304
  Transmission Date: 20041129
  Serious: No
  Sender: FDA-Public Use
  Company Number: 04P-130-0252599-00

PATIENT
  Age: 27 Year

DRUGS (1)
  1. BIAXIN XL [Suspect]
     Dosage: 500 MG, PER ORAL
     Route: 048
     Dates: end: 20031106

REACTIONS (2)
  - DERMATITIS BULLOUS [None]
  - VASCULITIS [None]
